FAERS Safety Report 7273611-6 (Version None)
Quarter: 2011Q1

REPORT INFORMATION
  Report Type: 
  Country: None (occurrence: None)
  Receive Date: 20110203
  Receipt Date: 20101117
  Transmission Date: 20110831
  Serious: No
  Sender: FDA-Public Use
  Company Number: US-ABBOTT-10P-163-0686242-00

PATIENT
  Sex: Male
  Weight: 77.18 kg

DRUGS (1)
  1. SYNTHROID [Suspect]
     Indication: HYPOTHYROIDISM
     Dates: start: 20100601

REACTIONS (2)
  - DENTAL CARIES [None]
  - GINGIVAL BLEEDING [None]
